FAERS Safety Report 8590072-5 (Version None)
Quarter: 2012Q3

REPORT INFORMATION
  Report Type: 
  Country: None (occurrence: None)
  Receive Date: 20120813
  Receipt Date: 20120807
  Transmission Date: 20120928
  Serious: Yes (Hospitalization)
  Sender: FDA-Public Use
  Company Number: US-CELGENEUS-163-21880-12080888

PATIENT
  Sex: Female
  Weight: 78.542 kg

DRUGS (11)
  1. REVLIMID [Suspect]
     Indication: MULTIPLE MYELOMA
     Dosage: 10 MILLIGRAM
     Route: 048
     Dates: start: 20120613
  2. KLOR-CON [Concomitant]
     Dosage: 10 MILLIEQUIVALENTS
     Route: 048
  3. ASPIRIN [Concomitant]
     Dosage: 81 MILLIGRAM
     Route: 048
  4. DEXAMETHASONE [Concomitant]
     Dosage: 4 MILLIGRAM
     Route: 048
  5. AMLODIPINE [Concomitant]
     Dosage: 5 MILLIGRAM
     Route: 048
  6. GLIPIZIDE [Concomitant]
     Dosage: 10 MILLIGRAM
     Route: 048
  7. STOOL SOFTENER [Concomitant]
     Dosage: 50 MILLIGRAM
     Route: 048
  8. LASIX [Concomitant]
     Dosage: 20 MILLIGRAM
     Route: 048
  9. MAGNESIUM [Concomitant]
     Dosage: 400 MILLIGRAM
     Route: 048
  10. METOPROLOL TARTRATE [Concomitant]
     Dosage: 100 MILLIGRAM
     Route: 048
  11. PRAVASTATIN [Concomitant]
     Dosage: 20 MILLIGRAM
     Route: 048

REACTIONS (5)
  - PRODUCTIVE COUGH [None]
  - DEHYDRATION [None]
  - DIARRHOEA [None]
  - RESPIRATORY TRACT CONGESTION [None]
  - BLOOD POTASSIUM INCREASED [None]
